FAERS Safety Report 13792646 (Version 1)
Quarter: 2017Q3

REPORT INFORMATION
  Report Type: Spontaneous
  Country: CN (occurrence: CN)
  Receive Date: 20170726
  Receipt Date: 20170726
  Transmission Date: 20171127
  Serious: Yes (Other)
  Sender: FDA-Public Use
  Company Number: CN-BAYER-2017-136642

PATIENT
  Sex: Male

DRUGS (1)
  1. BAYASPIRIN 100 MG [Suspect]
     Active Substance: ASPIRIN
     Indication: CEREBRAL INFARCTION
     Dosage: UNK
     Dates: start: 2015

REACTIONS (2)
  - Product use in unapproved indication [None]
  - Thyroid mass [None]

NARRATIVE: CASE EVENT DATE: 2015
